FAERS Safety Report 7003202-3 (Version None)
Quarter: 2010Q3

REPORT INFORMATION
  Report Type: 
  Country: None (occurrence: None)
  Receive Date: 20100920
  Receipt Date: 20100408
  Transmission Date: 20110219
  Serious: No
  Sender: FDA-Public Use
  Company Number: US-ASTRAZENECA-2010SE15413

PATIENT
  Age: 356 Month
  Sex: Female
  Weight: 89.8 kg

DRUGS (2)
  1. SEROQUEL XR [Suspect]
     Indication: BIPOLAR DISORDER
     Route: 048
     Dates: start: 20100314
  2. SEROQUEL XR [Suspect]
     Indication: INSOMNIA
     Route: 048
     Dates: start: 20100314

REACTIONS (5)
  - DEPRESSION [None]
  - HALLUCINATION, AUDITORY [None]
  - HEADACHE [None]
  - HYPERSOMNIA [None]
  - LETHARGY [None]
